FAERS Safety Report 24924141 (Version 1)
Quarter: 2025Q1

REPORT INFORMATION
  Report Type: Spontaneous
  Country: US (occurrence: US)
  Receive Date: 20250204
  Receipt Date: 20250204
  Transmission Date: 20250408
  Serious: Yes (Other)
  Sender: NOVARTIS
  Company Number: US-002147023-NVSC2025US014343

PATIENT
  Sex: Male

DRUGS (1)
  1. SCEMBLIX [Suspect]
     Active Substance: ASCIMINIB HYDROCHLORIDE
     Indication: Chronic myeloid leukaemia
     Dosage: UNK UNK, BID
     Route: 048

REACTIONS (3)
  - Chronic myeloid leukaemia [Recovering/Resolving]
  - Malignant neoplasm progression [Recovering/Resolving]
  - Therapy non-responder [Recovering/Resolving]
